FAERS Safety Report 6851107-0 (Version None)
Quarter: 2010Q3

REPORT INFORMATION
  Report Type: 
  Country: None (occurrence: None)
  Receive Date: 20100716
  Receipt Date: 20071026
  Transmission Date: 20110219
  Serious: No
  Sender: FDA-Public Use
  Company Number: US-PFIZER INC-2007091888

PATIENT
  Sex: Female
  Weight: 69.09 kg

DRUGS (15)
  1. CHANTIX [Suspect]
     Indication: SMOKING CESSATION THERAPY
     Dates: start: 20071015
  2. ALBUTEROL [Concomitant]
  3. ADVAIR DISKUS 100/50 [Concomitant]
  4. SPIRIVA [Concomitant]
  5. AVALIDE [Concomitant]
     Dosage: 300/12.5MG
  6. ALLEGRA [Concomitant]
  7. THEOPHYLLINE [Concomitant]
  8. K-DUR [Concomitant]
  9. ACTONEL [Concomitant]
  10. LEXAPRO [Concomitant]
  11. PREVACID [Concomitant]
  12. LEVOTHYROXINE SODIUM [Concomitant]
  13. AVANDIA [Concomitant]
  14. MONTELUKAST SODIUM [Concomitant]
  15. DIAZEPAM [Concomitant]
     Indication: ANXIETY

REACTIONS (1)
  - NAUSEA [None]
